FAERS Safety Report 19401093 (Version 1)
Quarter: 2021Q2

REPORT INFORMATION
  Report Type: Report from Study
  Country: US (occurrence: US)
  Receive Date: 20210611
  Receipt Date: 20210611
  Transmission Date: 20210717
  Serious: No
  Sender: FDA-Public Use
  Company Number: US-ACADIA PHARMACEUTICALS INC.-ACA-2021-PIM-001838

PATIENT
  Age: 87 Year
  Sex: Male
  Weight: 63 kg

DRUGS (18)
  1. SEROQUEL [Suspect]
     Active Substance: QUETIAPINE FUMARATE
     Dosage: 25 MILLIGRAM AT BEDTIME
     Dates: start: 20210511
  2. SEROQUEL [Suspect]
     Active Substance: QUETIAPINE FUMARATE
     Dosage: HALF THE SEROQUEL AT BEDTIME
     Dates: start: 20210512
  3. PRAVASTATIN. [Concomitant]
     Active Substance: PRAVASTATIN
  4. LANTUS [Concomitant]
     Active Substance: INSULIN GLARGINE
  5. NUPLAZID [Suspect]
     Active Substance: PIMAVANSERIN TARTRATE
     Indication: PARKINSON^S DISEASE
     Dosage: 34 MILLIGRAM, QD
     Route: 048
     Dates: start: 20210501, end: 20210513
  6. NUPLAZID [Suspect]
     Active Substance: PIMAVANSERIN TARTRATE
     Indication: DELUSION
  7. LORATADINE. [Concomitant]
     Active Substance: LORATADINE
  8. CARBIDOPA/LEVODOPA [Concomitant]
     Active Substance: CARBIDOPA\LEVODOPA
  9. TRADJENTA [Concomitant]
     Active Substance: LINAGLIPTIN
  10. CILOSTAZOL. [Concomitant]
     Active Substance: CILOSTAZOL
  11. COREG [Concomitant]
     Active Substance: CARVEDILOL
  12. PLAVIX [Concomitant]
     Active Substance: CLOPIDOGREL BISULFATE
  13. LISINOPRIL/HCTZ [Concomitant]
     Active Substance: HYDROCHLOROTHIAZIDE\LISINOPRIL
  14. NUPLAZID [Suspect]
     Active Substance: PIMAVANSERIN TARTRATE
     Indication: HALLUCINATION
  15. SEROQUEL [Suspect]
     Active Substance: QUETIAPINE FUMARATE
     Dosage: UNK
  16. ASPIRIN [ACETYLSALICYLIC ACID] [Concomitant]
     Active Substance: ASPIRIN
  17. HUMALOG [Concomitant]
     Active Substance: INSULIN LISPRO
  18. SCOPOLAMINE [HYOSCINE] [Concomitant]
     Active Substance: SCOPOLAMINE

REACTIONS (13)
  - Adverse drug reaction [Unknown]
  - Abnormal behaviour [Unknown]
  - Hallucination [Unknown]
  - Confusional state [Unknown]
  - Gait disturbance [Unknown]
  - Drug ineffective [Unknown]
  - Delusion [Unknown]
  - Insomnia [Unknown]
  - Somnolence [Unknown]
  - Hallucination [Unknown]
  - Asthenia [Unknown]
  - Dementia [Unknown]
  - Speech disorder [Unknown]

NARRATIVE: CASE EVENT DATE: 20210512
